FAERS Safety Report 12169736 (Version 1)
Quarter: 2016Q1

REPORT INFORMATION
  Report Type: Spontaneous
  Country: US (occurrence: US)
  Receive Date: 20160310
  Receipt Date: 20160310
  Transmission Date: 20160526
  Serious: No
  Sender: FDA-Public Use
  Company Number: US-009507513-1603USA004526

PATIENT
  Sex: Female
  Weight: 86.17 kg

DRUGS (1)
  1. NUVARING [Suspect]
     Active Substance: ETHINYL ESTRADIOL\ETONOGESTREL
     Indication: CONTRACEPTION
     Dosage: UNK, Q5W
     Route: 067
     Dates: start: 2014

REACTIONS (4)
  - Unintended pregnancy [Unknown]
  - Incorrect drug administration duration [Unknown]
  - Pregnancy with contraceptive device [Unknown]
  - Device expulsion [Recovered/Resolved]
